FAERS Safety Report 8427441-X (Version None)
Quarter: 2012Q2

REPORT INFORMATION
  Report Type: 
  Country: None (occurrence: None)
  Receive Date: 20120611
  Receipt Date: 20120606
  Transmission Date: 20120825
  Serious: Yes (Life-Threatening)
  Sender: FDA-Public Use
  Company Number: CA-ASTRAZENECA-2012SE38029

PATIENT
  Age: 27 Year
  Sex: Female

DRUGS (1)
  1. PROPOFOL [Suspect]
     Dosage: 13 MG/KG/HOUR FOR 48HOUR
     Route: 042

REACTIONS (4)
  - METABOLIC ACIDOSIS [None]
  - SHOCK [None]
  - PROPOFOL INFUSION SYNDROME [None]
  - ARRHYTHMIA [None]
